FAERS Safety Report 9223298 (Version 2)
Quarter: 2013Q2

REPORT INFORMATION
  Report Type: Spontaneous
  Country: JP (occurrence: JP)
  Receive Date: 20130410
  Receipt Date: 20130416
  Transmission Date: 20140414
  Serious: Yes (Death, Other)
  Sender: FDA-Public Use
  Company Number: JP-PFIZER INC-2013107594

PATIENT
  Age: 67 Year
  Sex: Male

DRUGS (2)
  1. ZYVOX [Suspect]
     Indication: ENTEROCOCCAL INFECTION
     Dosage: 1200 MG DAILY
     Route: 041
     Dates: start: 20130402, end: 20130404
  2. DORIPENEM [Concomitant]
     Indication: INFECTION PROPHYLAXIS

REACTIONS (3)
  - Renal impairment [Fatal]
  - Blood pressure decreased [Fatal]
  - Blood creatine phosphokinase increased [Fatal]
